FAERS Safety Report 25526383 (Version 1)
Quarter: 2025Q3

REPORT INFORMATION
  Report Type: Spontaneous
  Country: EU (occurrence: EU)
  Receive Date: 20250707
  Receipt Date: 20250707
  Transmission Date: 20251021
  Serious: Yes (Other)
  Sender: SANDOZ
  Company Number: EU-RDY-ESP/2025/06/008699

PATIENT
  Age: 46 Year
  Sex: Female

DRUGS (4)
  1. CARBOPLATIN [Suspect]
     Active Substance: CARBOPLATIN
     Indication: Pericardial mesothelioma malignant
     Route: 065
     Dates: start: 202403
  2. PEMETREXED [Suspect]
     Active Substance: PEMETREXED
     Indication: Pericardial mesothelioma malignant
     Dosage: 500 MG/M2, FOR EVERY 21 DAYS
     Route: 065
     Dates: start: 202403
  3. FOLIC ACID [Concomitant]
     Active Substance: FOLIC ACID
     Indication: Supplementation therapy
     Route: 065
     Dates: start: 202403
  4. VITAMIN B12 [Concomitant]
     Active Substance: CYANOCOBALAMIN
     Indication: Supplementation therapy
     Route: 065
     Dates: start: 202403

REACTIONS (2)
  - Disease progression [Unknown]
  - Drug ineffective [Unknown]

NARRATIVE: CASE EVENT DATE: 20240101
